FAERS Safety Report 9026143 (Version 2)
Quarter: 2013Q1

REPORT INFORMATION
  Report Type: Spontaneous
  Country: US (occurrence: None)
  Receive Date: 20121207
  Receipt Date: 20130103
  Transmission Date: 20140127
  Serious: Yes (Hospitalization)
  Sender: FDA-Public Use
  Company Number: 2012-20794

PATIENT
  Age: 73 Year
  Sex: Male
  Weight: 85 kg

DRUGS (13)
  1. TRELSTAR [Suspect]
     Indication: PROSTATE CANCER
     Dosage: 1 IN 6 WEEK
     Route: 030
     Dates: start: 20090918, end: 20091222
  2. BICALUTAMIDE [Suspect]
     Indication: PROSTATE CANCER
     Route: 048
     Dates: start: 20091208
  3. BEVACIZUMAB [Suspect]
     Indication: PROSTATE CANCER
     Dosage: FREQUENCY REPO
     Route: 042
     Dates: start: 20090915, end: 20100216
  4. DOCETAXEL [Suspect]
     Dosage: FREQUENCY REPO
     Route: 042
     Dates: start: 20090915, end: 20091117
  5. VERAPAMIL [Concomitant]
  6. ENALAPRIL [Concomitant]
  7. ZOCOR (SIMVASTATIN) [Concomitant]
  8. NEXIUM /01479302/ (ESOMEPRAZOLE MAGNESIUM) [Concomitant]
  9. LEVEMIR (INSULIN DETEMIR) [Concomitant]
  10. AMARYL (GLIMEPIRIDE) [Concomitant]
  11. CREON (PANCREATIN) [Concomitant]
  12. COMPAZINE /00013302/  (PROCHLORPERAZINE EDISYLATE) [Concomitant]
  13. LYRICA (PREGABALIN) [Concomitant]

REACTIONS (4)
  - Nodal rhythm [None]
  - Headache [None]
  - Skin infection [None]
  - Chest discomfort [None]
